FAERS Safety Report 7396141-X (Version None)
Quarter: 2011Q2

REPORT INFORMATION
  Report Type: 
  Country: None (occurrence: None)
  Receive Date: 20110406
  Receipt Date: 20110330
  Transmission Date: 20111010
  Serious: Yes (Death, Other)
  Sender: FDA-Public Use
  Company Number: GB-GENZYME-THYM-1002351

PATIENT
  Sex: Male
  Weight: 74.6 kg

DRUGS (2)
  1. CYCLOSPORINE [Concomitant]
     Indication: APLASTIC ANAEMIA
     Dosage: 175 MG, QD
     Route: 048
     Dates: start: 20100223, end: 20101011
  2. THYMOGLOBULIN [Suspect]
     Indication: APLASTIC ANAEMIA
     Dosage: 267.5 MG, QD
     Route: 042
     Dates: start: 20100224, end: 20100228

REACTIONS (11)
  - BONE MARROW FAILURE [None]
  - PSEUDOMONAS TEST POSITIVE [None]
  - BRONCHOPNEUMONIA [None]
  - MULTI-ORGAN FAILURE [None]
  - VENOUS THROMBOSIS [None]
  - RENAL IMPAIRMENT [None]
  - PULMONARY EMBOLISM [None]
  - ISCHAEMIC HEPATITIS [None]
  - HUMAN RHINOVIRUS TEST POSITIVE [None]
  - ANAEMIA HAEMOLYTIC AUTOIMMUNE [None]
  - BACTERIAL INFECTION [None]
